FAERS Safety Report 7753314-1 (Version None)
Quarter: 2011Q3

REPORT INFORMATION
  Report Type: 
  Country: None (occurrence: None)
  Receive Date: 20110915
  Receipt Date: 20100625
  Transmission Date: 20111222
  Serious: No
  Sender: FDA-Public Use
  Company Number: US-BAYER-201028423NA

PATIENT
  Age: 53 Year
  Sex: Female

DRUGS (3)
  1. ESTROGEN NOS [Concomitant]
  2. MIRENA [Suspect]
     Indication: PRODUCT USED FOR UNKNOWN INDICATION
     Dosage: 20 ?G/D, UNK
     Route: 015
  3. WELLBUTRIN [Concomitant]

REACTIONS (1)
  - WEIGHT INCREASED [None]
